FAERS Safety Report 5957176-4 (Version None)
Quarter: 2008Q4

REPORT INFORMATION
  Report Type: 
  Country: None (occurrence: None)
  Receive Date: 20081118
  Receipt Date: 20081106
  Transmission Date: 20090506
  Serious: Yes (Life-Threatening, Hospitalization)
  Sender: FDA-Public Use
  Company Number: JP-ROCHE-538662

PATIENT
  Sex: Male
  Weight: 77 kg

DRUGS (1)
  1. PEGASYS [Suspect]
     Indication: HEPATITIS C
     Route: 058
     Dates: start: 20060601, end: 20070901

REACTIONS (2)
  - HYPERTENSIVE ENCEPHALOPATHY [None]
  - LACUNAR INFARCTION [None]
